FAERS Safety Report 6362111-3 (Version None)
Quarter: 2009Q3

REPORT INFORMATION
  Report Type: 
  Country: None (occurrence: None)
  Receive Date: 20090918
  Receipt Date: 20090909
  Transmission Date: 20100115
  Serious: Yes (Hospitalization)
  Sender: FDA-Public Use
  Company Number: US-ELI_LILLY_AND_COMPANY-US200908002670

PATIENT
  Sex: Female
  Weight: 117.91 kg

DRUGS (15)
  1. BYETTA [Suspect]
     Indication: TYPE 2 DIABETES MELLITUS
     Dosage: 5 UG, 2/D
     Route: 058
     Dates: start: 20070601
  2. BYETTA [Suspect]
     Dosage: 10 UG, 2/D
     Route: 058
     Dates: end: 20070101
  3. BYETTA [Suspect]
     Dosage: 5 UG, 2/D
     Route: 058
     Dates: start: 20090101, end: 20090101
  4. BYETTA [Suspect]
     Dosage: 10 UG, 2/D
     Route: 058
     Dates: start: 20090101
  5. METFORMIN HCL [Concomitant]
     Dosage: 1000 MG, 2/D
     Route: 048
  6. METFORMIN HCL [Concomitant]
     Dosage: 500 MG, 2/D
     Route: 048
     Dates: end: 20090810
  7. METFORMIN HCL [Concomitant]
     Dosage: 500 MG, 3/D
     Route: 048
     Dates: start: 20090811
  8. LANTUS [Concomitant]
     Indication: TYPE 2 DIABETES MELLITUS
     Dosage: 50 U, DAILY (1/D)
     Dates: end: 20070601
  9. LIPITOR [Concomitant]
     Dosage: 10 MG, DAILY (1/D)
     Route: 048
  10. NEXIUM [Concomitant]
     Dosage: 40 MG, DAILY (1/D)
     Route: 048
  11. COZAAR [Concomitant]
     Dosage: 100 MG, DAILY (1/D)
     Route: 048
  12. TOPROL-XL [Concomitant]
     Dosage: 100 MG, DAILY (1/D)
     Route: 048
  13. ZETIA [Concomitant]
     Dosage: 10 MG, DAILY (1/D)
     Route: 048
  14. VITAMIN D [Concomitant]
     Dosage: 1000 MG, DAILY (1/D)
  15. PANCREATIC ENZYMES [Concomitant]

REACTIONS (6)
  - BLOOD GLUCOSE DECREASED [None]
  - BLOOD GLUCOSE INCREASED [None]
  - DECREASED APPETITE [None]
  - DIARRHOEA [None]
  - GASTROINTESTINAL INFLAMMATION [None]
  - WEIGHT INCREASED [None]
